FAERS Safety Report 7964281-X (Version None)
Quarter: 2011Q4

REPORT INFORMATION
  Report Type: 
  Country: None (occurrence: None)
  Receive Date: 20111205
  Receipt Date: 20111119
  Transmission Date: 20120403
  Serious: Yes (Death, Hospitalization)
  Sender: FDA-Public Use
  Company Number: 2011AP002773

PATIENT
  Age: 39 Year
  Sex: Male

DRUGS (1)
  1. METFORMIN HCL [Suspect]
     Indication: PRODUCT USED FOR UNKNOWN INDICATION
     Dosage: 90 G

REACTIONS (5)
  - LACTIC ACIDOSIS [None]
  - HAEMODIALYSIS [None]
  - INTENTIONAL OVERDOSE [None]
  - SHOCK [None]
  - COMPLETED SUICIDE [None]
